FAERS Safety Report 5576001-7 (Version None)
Quarter: 2007Q4

REPORT INFORMATION
  Report Type: 
  Country: None (occurrence: None)
  Receive Date: 20071228
  Receipt Date: 20071217
  Transmission Date: 20080405
  Serious: Yes (Other)
  Sender: FDA-Public Use
  Company Number: US-JNJFOC-20071204682

PATIENT
  Sex: Male
  Weight: 16.78 kg

DRUGS (3)
  1. CHILDRENS TYLENOL PLUS MULTI-SYMPTOM COLD GRAPE [Suspect]
     Indication: NASOPHARYNGITIS
     Route: 048
  2. ALBUTEROL [Concomitant]
     Indication: WHEEZING
  3. GRISEOFULVIN [Concomitant]
     Dosage: PRESCRIBED FOR ONE MONTH
     Route: 048

REACTIONS (2)
  - DRUG INEFFECTIVE [None]
  - MEDICATION TAMPERING [None]
